FAERS Safety Report 8348582-1 (Version None)
Quarter: 2012Q2

REPORT INFORMATION
  Report Type: 
  Country: None (occurrence: None)
  Receive Date: 20120510
  Receipt Date: 20120501
  Transmission Date: 20120825
  Serious: Yes (Hospitalization)
  Sender: FDA-Public Use
  Company Number: US-BRISTOL-MYERS SQUIBB COMPANY-16472797

PATIENT
  Age: 44 Year
  Sex: Male
  Weight: 81 kg

DRUGS (4)
  1. ALBUTEROL [Concomitant]
  2. METHYLPREDNISOLONE [Concomitant]
     Dosage: INJECTION
  3. NYSTATIN [Concomitant]
  4. ERBITUX [Suspect]
     Indication: HEAD AND NECK CANCER
     Dosage: 12MAR12-12MAR12,INTER ON 12MAR12 500MG,NO OF COURCES:5
     Dates: start: 20120215

REACTIONS (2)
  - NAUSEA [None]
  - PNEUMONITIS [None]
